FAERS Safety Report 7303584-9 (Version None)
Quarter: 2011Q1

REPORT INFORMATION
  Report Type: 
  Country: None (occurrence: None)
  Receive Date: 20110221
  Receipt Date: 20110215
  Transmission Date: 20110831
  Serious: Yes (Hospitalization)
  Sender: FDA-Public Use
  Company Number: PHHO2010US11358

PATIENT
  Sex: Male
  Weight: 79.1 kg

DRUGS (4)
  1. NEUPOGEN [Suspect]
     Indication: ACUTE MYELOID LEUKAEMIA
  2. STI571/CGP57148B [Suspect]
     Indication: ACUTE MYELOID LEUKAEMIA
     Dosage: 600 MG, DAILY
     Route: 048
     Dates: start: 20100616, end: 20100629
  3. ARA-C [Suspect]
     Indication: ACUTE MYELOID LEUKAEMIA
  4. CLADRIBINE [Suspect]
     Indication: ACUTE MYELOID LEUKAEMIA

REACTIONS (8)
  - LUNG INFILTRATION [None]
  - PULMONARY ALVEOLAR HAEMORRHAGE [None]
  - HYPOXIA [None]
  - PYREXIA [None]
  - DYSPNOEA [None]
  - LUNG CONSOLIDATION [None]
  - PLATELET AGGREGATION ABNORMAL [None]
  - LUNG DISORDER [None]
